FAERS Safety Report 6978307-3 (Version None)
Quarter: 2010Q3

REPORT INFORMATION
  Report Type: 
  Country: None (occurrence: None)
  Receive Date: 20100913
  Receipt Date: 20100831
  Transmission Date: 20110219
  Serious: Yes (Hospitalization)
  Sender: FDA-Public Use
  Company Number: US-ELI_LILLY_AND_COMPANY-US201009000774

PATIENT
  Sex: Female

DRUGS (3)
  1. SYMBYAX [Suspect]
     Dosage: 1 D/F, UNK
  2. CYMBALTA [Suspect]
     Dosage: 60 MG, 2/D
  3. DEPAKOTE ER [Concomitant]
     Dosage: 500 MG, UNK

REACTIONS (4)
  - HALLUCINATION [None]
  - HEART RATE INCREASED [None]
  - HYPERTENSION [None]
  - MEMORY IMPAIRMENT [None]
